FAERS Safety Report 5075719-2 (Version None)
Quarter: 2006Q3

REPORT INFORMATION
  Report Type: 
  Country: None (occurrence: None)
  Receive Date: 20060809
  Receipt Date: 20060728
  Transmission Date: 20061208
  Serious: Yes (Other)
  Sender: FDA-Public Use
  Company Number: GB-BRISTOL-MYERS SQUIBB COMPANY-13464581

PATIENT
  Age: 47 Year
  Sex: Male

DRUGS (8)
  1. TRAZODONE HCL [Suspect]
     Indication: DEPRESSION
     Route: 048
     Dates: start: 20050801, end: 20060514
  2. CYMBALTA [Suspect]
     Indication: DEPRESSION
     Route: 048
     Dates: start: 20050501
  3. LAMOTRIGINE [Suspect]
     Dosage: DOSAGE: 25 MG DAILY; 50 MG DAILY
  4. CARDURA [Concomitant]
  5. ACETAMINOPHEN W/ CODEINE [Concomitant]
  6. COLCHICINE [Concomitant]
  7. IRBESARTAN [Concomitant]
  8. SECURON [Concomitant]

REACTIONS (2)
  - BLOOD CREATINE PHOSPHOKINASE INCREASED [None]
  - MYALGIA [None]
